FAERS Safety Report 5478205-0 (Version None)
Quarter: 2007Q4

REPORT INFORMATION
  Report Type: 
  Country: None (occurrence: None)
  Receive Date: 20071005
  Receipt Date: 20070927
  Transmission Date: 20080405
  Serious: Yes (Life-Threatening)
  Sender: FDA-Public Use
  Company Number: FR-AVENTIS-200713061FR

PATIENT
  Age: 54 Year
  Sex: Male

DRUGS (19)
  1. LOVENOX [Suspect]
     Route: 058
     Dates: start: 20070823, end: 20070831
  2. RAMIPRIL RATIOPHARM [Suspect]
     Route: 048
  3. KALEORID [Suspect]
     Route: 048
     Dates: start: 20070710, end: 20070822
  4. CORTANCYL [Concomitant]
     Route: 048
     Dates: start: 20070710, end: 20070101
  5. CORTANCYL [Concomitant]
     Route: 048
     Dates: start: 20070101
  6. LASIX [Concomitant]
     Route: 048
  7. GLYBURIDE [Concomitant]
  8. SERETIDE DISCUS [Concomitant]
     Indication: ASTHMA
  9. BRICANYL [Concomitant]
     Indication: ASTHMA
  10. KARDEGIC                           /00002703/ [Concomitant]
     Route: 048
  11. MONO-TILDIEM [Concomitant]
  12. TAHOR [Concomitant]
  13. DIFFU K [Concomitant]
     Dates: start: 20070701
  14. CACIT D3 [Concomitant]
     Dates: start: 20070701
  15. FOSAMAX [Concomitant]
     Dates: start: 20070701
  16. PROTON PUMP INHIBITORS [Concomitant]
     Dates: start: 20070701
  17. ENDOXAN [Concomitant]
     Route: 042
     Dates: start: 20070716, end: 20070716
  18. ENDOXAN [Concomitant]
     Route: 042
     Dates: start: 20070801, end: 20070801
  19. ENDOXAN [Concomitant]
     Route: 042
     Dates: start: 20070814, end: 20070814

REACTIONS (2)
  - CARDIAC ARREST [None]
  - HYPERKALAEMIA [None]
